FAERS Safety Report 11470511 (Version 2)
Quarter: 2015Q3

REPORT INFORMATION
  Report Type: Spontaneous
  Country: US (occurrence: US)
  Receive Date: 20150903
  Receipt Date: 20150903
  Transmission Date: 20151125
  Serious: No
  Sender: FDA-Public Use
  Company Number: US-ELI_LILLY_AND_COMPANY-US201110007073

PATIENT
  Age: 52 Year
  Sex: Female
  Weight: 68.8 kg

DRUGS (9)
  1. TENORMIN [Concomitant]
     Active Substance: ATENOLOL
     Dosage: 50 MG, QD
  2. ASA [Concomitant]
     Active Substance: ASPIRIN
     Dosage: 325 MG, QD
  3. XANAX [Concomitant]
     Active Substance: ALPRAZOLAM
     Dosage: .25 MG, EVERY 8 HRS
  4. CYMBALTA [Suspect]
     Active Substance: DULOXETINE HYDROCHLORIDE
     Indication: FIBROMYALGIA
     Dosage: 60 MG, UNK
     Route: 048
     Dates: start: 20110330, end: 20111111
  5. IBUPROFEN. [Concomitant]
     Active Substance: IBUPROFEN
     Dosage: 600 MG, EVERY 6 HRS
  6. XANAX [Concomitant]
     Active Substance: ALPRAZOLAM
     Dosage: .50 MG, EACH EVENING
  7. SYNTHROID [Concomitant]
     Active Substance: LEVOTHYROXINE SODIUM
     Dosage: .025 UG, UNK
  8. PROTONIX [Concomitant]
     Active Substance: PANTOPRAZOLE SODIUM
     Dosage: 40 MG, QD
  9. NUCYNTA [Concomitant]
     Active Substance: TAPENTADOL HYDROCHLORIDE
     Dosage: 50 MG, EVERY 6 HRS

REACTIONS (6)
  - Dizziness [Recovered/Resolved]
  - Dysgeusia [Recovered/Resolved]
  - Throat tightness [Recovered/Resolved]
  - Disturbance in attention [Recovered/Resolved]
  - Vertigo [Recovered/Resolved]
  - Nystagmus [Recovering/Resolving]

NARRATIVE: CASE EVENT DATE: 201110
